FAERS Safety Report 5312069-0 (Version None)
Quarter: 2007Q2

REPORT INFORMATION
  Report Type: 
  Country: None (occurrence: None)
  Receive Date: 20070430
  Receipt Date: 20060628
  Transmission Date: 20071010
  Serious: No
  Sender: FDA-Public Use
  Company Number: 2006UW13622

PATIENT
  Age: 74 Year
  Sex: Female
  Weight: 49.9 kg

DRUGS (8)
  1. NEXIUM [Suspect]
     Indication: GASTRITIS
     Route: 048
     Dates: start: 20060501
  2. VYTORIN [Concomitant]
  3. TOPROL-XL [Concomitant]
  4. HYDROCHLOROTHIAZIDE [Concomitant]
  5. MONOPRIL [Concomitant]
  6. PLAVIX [Concomitant]
  7. ASPIRIN [Concomitant]
  8. ALLOPURINOL [Concomitant]

REACTIONS (1)
  - BLOOD IRON INCREASED [None]
